FAERS Safety Report 9940955 (Version 1)
Quarter: 2014Q1

REPORT INFORMATION
  Report Type: Spontaneous
  Country: BR (occurrence: BR)
  Receive Date: 20140303
  Receipt Date: 20140303
  Transmission Date: 20141002
  Serious: Yes (Death, Other)
  Sender: FDA-Public Use
  Company Number: BR-PFIZER INC-2014057939

PATIENT
  Age: 92 Year
  Sex: Female

DRUGS (9)
  1. FRONTAL [Suspect]
     Indication: INSOMNIA
     Dosage: 0.5 MG (ONE TABLET), DAILY
     Route: 048
     Dates: start: 20110903
  2. FRONTAL [Suspect]
     Indication: AGITATION
  3. BENICAR [Concomitant]
     Dosage: ONE TABLET OR CAPSULE DAILY
     Dates: end: 20140111
  4. COMBIRON [Concomitant]
     Dosage: UNK
     Dates: end: 20140111
  5. CLINFAR [Concomitant]
     Dosage: UNK
     Dates: end: 20140111
  6. LEVOID [Concomitant]
     Dosage: UNK
     Dates: end: 20140111
  7. PROLOPA [Concomitant]
     Dosage: UNK
     Dates: end: 20140111
  8. RETEMIC [Concomitant]
     Dosage: UNK
     Dates: end: 20140111
  9. ZANIDIP [Concomitant]
     Dosage: UNK
     Dates: end: 20140111

REACTIONS (2)
  - Pneumonia [Fatal]
  - Septic shock [Fatal]
